FAERS Safety Report 23768278 (Version 1)
Quarter: 2024Q2

REPORT INFORMATION
  Report Type: Spontaneous
  Country: FR (occurrence: FR)
  Receive Date: 20240422
  Receipt Date: 20240422
  Transmission Date: 20240715
  Serious: Yes (Hospitalization, Other)
  Sender: FDA-Public Use
  Company Number: FR-AstraZeneca-2014SE51864

PATIENT
  Age: 4 Year
  Sex: Female
  Weight: 15 kg

DRUGS (36)
  1. AUGMENTIN [Suspect]
     Active Substance: AMOXICILLIN\CLAVULANATE POTASSIUM
     Indication: Product used for unknown indication
     Route: 065
     Dates: start: 20140604, end: 20140611
  2. LIDOCAINE HYDROCHLORIDE [Suspect]
     Active Substance: LIDOCAINE HYDROCHLORIDE
     Indication: Product used for unknown indication
     Route: 065
  3. LIDOCAINE HYDROCHLORIDE [Suspect]
     Active Substance: LIDOCAINE HYDROCHLORIDE
     Indication: Product used for unknown indication
     Route: 065
  4. OMEPRAZOLE [Suspect]
     Active Substance: OMEPRAZOLE
     Indication: Product used for unknown indication
     Route: 048
     Dates: start: 20140606
  5. ACETAMINOPHEN [Suspect]
     Active Substance: ACETAMINOPHEN
     Indication: Product used for unknown indication
     Dosage: 15 MG/KG/6 TIMES A DAY
     Route: 048
     Dates: start: 20140603
  6. ACETAMINOPHEN [Suspect]
     Active Substance: ACETAMINOPHEN
     Dosage: 4 TIMES A DAY
     Route: 048
     Dates: start: 20140610
  7. CLARITHROMYCIN [Suspect]
     Active Substance: CLARITHROMYCIN
     Indication: Product used for unknown indication
     Route: 065
     Dates: start: 20140606
  8. ADVIL [Concomitant]
     Active Substance: IBUPROFEN
     Indication: Product used for unknown indication
     Dosage: ONE DOSE
     Route: 065
     Dates: start: 20140602, end: 20140602
  9. AMPHOTERICIN B [Concomitant]
     Active Substance: AMPHOTERICIN B
     Indication: Product used for unknown indication
     Route: 065
  10. AMPHOTERICIN B [Concomitant]
     Active Substance: AMPHOTERICIN B
     Indication: Product used for unknown indication
     Route: 065
  11. CARBOXYMETHYLCELLULOSE SODIUM [Concomitant]
     Active Substance: CARBOXYMETHYLCELLULOSE SODIUM
     Indication: Product used for unknown indication
     Dosage: FOAM (CUTANEOUS)
     Route: 065
     Dates: start: 20140605
  12. CARBOXYMETHYLCELLULOSE SODIUM [Concomitant]
     Active Substance: CARBOXYMETHYLCELLULOSE SODIUM
     Dosage: FOAM (CUTANEOUS)
     Route: 065
  13. CARBOXYMETHYLCELLULOSE SODIUM [Concomitant]
     Active Substance: CARBOXYMETHYLCELLULOSE SODIUM
     Indication: Product used for unknown indication
     Dosage: VULVA
     Route: 065
     Dates: start: 20140605
  14. CARBOXYMETHYLCELLULOSE SODIUM [Concomitant]
     Active Substance: CARBOXYMETHYLCELLULOSE SODIUM
     Dosage: VULVA
     Route: 065
     Dates: start: 20140605
  15. BACTROBAN [Concomitant]
     Active Substance: MUPIROCIN CALCIUM
     Indication: Product used for unknown indication
     Dosage: ONCE DAILY
     Route: 045
     Dates: start: 20140606
  16. DEXAMETHASONE SODIUM PHOSPHATE\NEOMYCIN SULFATE [Concomitant]
     Active Substance: DEXAMETHASONE SODIUM PHOSPHATE\NEOMYCIN SULFATE
     Indication: Product used for unknown indication
     Dosage: UNK
     Route: 065
  17. DESLORATADINE [Concomitant]
     Active Substance: DESLORATADINE
     Indication: Hand-foot-and-mouth disease
     Dosage: UNK
     Route: 065
     Dates: start: 20240603
  18. FLUORESCEIN SODIUM [Concomitant]
     Active Substance: FLUORESCEIN SODIUM
     Indication: Product used for unknown indication
     Dosage: BIDAILY ON THE WHOLE BODY
     Route: 065
     Dates: start: 20140605, end: 20140611
  19. POLYETHYLENE GLYCOL 4000 [Concomitant]
     Active Substance: POLYETHYLENE GLYCOL 4000
     Indication: Product used for unknown indication
     Dosage: 120 MG AT MIDDAY, FOR 15 DAYS
     Route: 045
     Dates: start: 20140606
  20. MIDAZOLAM [Concomitant]
     Active Substance: MIDAZOLAM
     Indication: Product used for unknown indication
     Dosage: 1-2 TIMES DAILY DURING CARES
     Route: 065
     Dates: start: 20140606, end: 20140610
  21. IBUPROFEN [Concomitant]
     Active Substance: IBUPROFEN
     Indication: Hand-foot-and-mouth disease
     Route: 065
     Dates: start: 20140603
  22. Jelonet [Concomitant]
     Indication: Product used for unknown indication
     Dosage: FACE
     Route: 065
     Dates: start: 20140605
  23. JOSAMYCIN [Concomitant]
     Active Substance: JOSAMYCIN
     Indication: Product used for unknown indication
     Route: 065
     Dates: start: 20140605
  24. KETAMINE [Concomitant]
     Active Substance: KETAMINE
     Indication: Product used for unknown indication
     Dosage: 1-2 TIMES DAILY DURING CARES
     Route: 065
     Dates: end: 20140610
  25. MORPHINE [Concomitant]
     Active Substance: MORPHINE
     Indication: Product used for unknown indication
     Dosage: UNK
     Route: 065
     Dates: end: 20140607
  26. NALBUPHINE [Concomitant]
     Active Substance: NALBUPHINE
     Indication: Product used for unknown indication
     Dosage: UNK
     Route: 065
     Dates: start: 20240603
  27. NUBAIN [Concomitant]
     Active Substance: NALBUPHINE HYDROCHLORIDE
     Indication: Product used for unknown indication
     Route: 065
  28. NUBAIN [Concomitant]
     Active Substance: NALBUPHINE HYDROCHLORIDE
     Indication: Product used for unknown indication
     Route: 065
  29. NUTRINI [Concomitant]
     Indication: Product used for unknown indication
     Dosage: ENTERIC NUTRITION AE , 24 HOURS/24 HOURS
     Route: 065
  30. PAROEX [Concomitant]
     Active Substance: CHLORHEXIDINE GLUCONATE
     Indication: Product used for unknown indication
     Dosage: ON LIPS AND OPHTHALMIC UNGUENT
     Route: 065
  31. MEQUITAZINE [Concomitant]
     Active Substance: MEQUITAZINE
     Indication: Product used for unknown indication
     Route: 065
  32. MEQUITAZINE [Concomitant]
     Active Substance: MEQUITAZINE
     Indication: Product used for unknown indication
     Route: 065
  33. SODIUM BICARBONATE [Concomitant]
     Active Substance: SODIUM BICARBONATE
     Indication: Product used for unknown indication
     Route: 065
  34. SODIUM BICARBONATE [Concomitant]
     Active Substance: SODIUM BICARBONATE
     Indication: Product used for unknown indication
     Route: 065
  35. AMINO ACIDS\DEXTROSE\ELECTROLYTES NOS\SOYBEAN OIL\VITAMINS [Concomitant]
     Active Substance: AMINO ACIDS\DEXTROSE\ELECTROLYTES NOS\SOYBEAN OIL\VITAMINS
     Indication: Product used for unknown indication
     Dosage: FIBERS 1200 ML 6 TIMES A DAY
     Route: 065
     Dates: start: 20140608
  36. VITAMIN A [Concomitant]
     Active Substance: VITAMIN A
     Indication: Product used for unknown indication
     Dosage: ON LIPS AND OPHTHALMIC UNGUENT
     Route: 065
     Dates: start: 20140605

REACTIONS (4)
  - Hepatitis cholestatic [Recovering/Resolving]
  - Metabolic acidosis [Unknown]
  - Off label use [Unknown]
  - Hyponatraemia [Unknown]

NARRATIVE: CASE EVENT DATE: 20140604
